FAERS Safety Report 12337935 (Version 1)
Quarter: 2016Q2

REPORT INFORMATION
  Report Type: Spontaneous
  Country: JP (occurrence: JP)
  Receive Date: 20160505
  Receipt Date: 20160505
  Transmission Date: 20160815
  Serious: Yes (Hospitalization)
  Sender: FDA-Public Use
  Company Number: JP-MEDA-2016040100

PATIENT
  Age: 28 Year
  Sex: Female

DRUGS (1)
  1. MESALAMINE. [Suspect]
     Active Substance: MESALAMINE
     Indication: COLITIS ULCERATIVE

REACTIONS (3)
  - Pleurisy [Recovering/Resolving]
  - Lung consolidation [Unknown]
  - Drug hypersensitivity [Unknown]
